FAERS Safety Report 5752934-3 (Version None)
Quarter: 2008Q2

REPORT INFORMATION
  Report Type: 
  Country: None (occurrence: None)
  Receive Date: 20080529
  Receipt Date: 20080521
  Transmission Date: 20081010
  Serious: Yes (Hospitalization)
  Sender: FDA-Public Use
  Company Number: AT-PFIZER INC-2008044247

PATIENT
  Age: 44 Year
  Sex: Female
  Weight: 97 kg

DRUGS (2)
  1. CLINDAMYCIN HCL [Suspect]
     Route: 048
     Dates: start: 20080328, end: 20080331
  2. AMOXICILLIN [Concomitant]
     Route: 048
     Dates: start: 20080327, end: 20080328

REACTIONS (3)
  - ACUTE GENERALISED EXANTHEMATOUS PUSTULOSIS [None]
  - DERMATITIS EXFOLIATIVE [None]
  - PSORIASIS [None]
